FAERS Safety Report 4422169-5 (Version None)
Quarter: 2004Q3

REPORT INFORMATION
  Report Type: 
  Country: None (occurrence: None)
  Receive Date: 20040806
  Receipt Date: 20040726
  Transmission Date: 20050211
  Serious: Yes (Hospitalization)
  Sender: FDA-Public Use
  Company Number: 2004225534US

PATIENT
  Age: 83 Year
  Sex: Female
  Weight: 77.1115 kg

DRUGS (11)
  1. DETROL LA [Suspect]
     Dosage: 4 MG ORAL
     Route: 048
     Dates: start: 20020101
  2. NEXIUM [Concomitant]
  3. ATENOLOL [Concomitant]
  4. BEXTRA [Suspect]
     Indication: CHONDROPATHY
     Dosage: ORAL
     Route: 048
     Dates: start: 20020101
  5. COZAAR [Concomitant]
  6. LIPITOR [Concomitant]
  7. CALCIUM [Concomitant]
  8. CENTRUM SILVER (VITAMIN B NOS, VITAMINS NOS, RETINOL) [Concomitant]
  9. ASPIRIN [Concomitant]
  10. VITAMIN C [Concomitant]
  11. VITAMIN E [Concomitant]

REACTIONS (4)
  - DRY MOUTH [None]
  - DYSURIA [None]
  - HIP FRACTURE [None]
  - LIP DRY [None]
